FAERS Safety Report 8860707 (Version 1)
Quarter: 2012Q4

REPORT INFORMATION
  Report Type: 
  Country: US (occurrence: US)
  Receive Date: 20121025
  Receipt Date: 20121025
  Transmission Date: 20130627
  Serious: Yes (Hospitalization, Other)
  Sender: FDA-Public Use
  Company Number: US-US-EMD SERONO, INC.-7168741

PATIENT
  Sex: Female

DRUGS (3)
  1. REBIF [Suspect]
     Indication: MULTIPLE SCLEROSIS
     Route: 058
     Dates: start: 20071116, end: 201107
  2. REBIF [Suspect]
     Route: 058
     Dates: start: 201204, end: 201204
  3. INSULIN [Concomitant]
     Indication: DIABETES MELLITUS

REACTIONS (4)
  - Intraspinal abscess [Recovered/Resolved]
  - Convulsion [Not Recovered/Not Resolved]
  - Fall [Unknown]
  - Contusion [Unknown]
